FAERS Safety Report 4924654-6 (Version None)
Quarter: 2006Q1

REPORT INFORMATION
  Report Type: 
  Country: None (occurrence: None)
  Receive Date: 20060222
  Receipt Date: 20060214
  Transmission Date: 20060701
  Serious: Yes (Hospitalization)
  Sender: FDA-Public Use
  Company Number: CIP06000322

PATIENT
  Age: 79 Year
  Sex: Female

DRUGS (4)
  1. ACTONEL [Suspect]
     Indication: OSTEOPOROSIS POSTMENOPAUSAL
     Dosage: 35 MG ONCE WEEKLY, ORAL
     Route: 048
     Dates: start: 20050201, end: 20051201
  2. CALCIUM (CALCIUM) [Concomitant]
  3. VITAMIN D [Concomitant]
  4. BISOPROLOL (BISOPROLOL) [Concomitant]

REACTIONS (3)
  - CHILLS [None]
  - POLYNEUROPATHY [None]
  - PYREXIA [None]
